FAERS Safety Report 18449951 (Version 2)
Quarter: 2020Q4

REPORT INFORMATION
  Report Type: Spontaneous
  Country: BA (occurrence: BA)
  Receive Date: 20201030
  Receipt Date: 20201104
  Transmission Date: 20210114
  Serious: Yes (Other)
  Sender: FDA-Public Use
  Company Number: BA-ROCHE-2703774

PATIENT
  Age: 54 Year
  Sex: Female
  Weight: 93 kg

DRUGS (6)
  1. RIVOTRIL [Suspect]
     Active Substance: CLONAZEPAM
     Indication: SPINAL OSTEOARTHRITIS
     Dosage: 1/4, 1/4, 1/2 TBL.
     Route: 048
     Dates: start: 20201016, end: 20201017
  2. BETASERC [Concomitant]
     Active Substance: BETAHISTINE
     Dosage: 1,0,1
     Route: 048
     Dates: start: 202009
  3. LETROX [Concomitant]
     Active Substance: LEVOTHYROXINE SODIUM
     Indication: HYPOTHYROIDISM
     Dosage: 75 MCG, 0, 0
     Route: 048
     Dates: start: 20190801
  4. NOLPAZA [Concomitant]
     Active Substance: PANTOPRAZOLE SODIUM
     Indication: HIATUS HERNIA
     Dosage: 1,0,0
     Route: 048
     Dates: start: 202007
  5. PROTECTA [Concomitant]
     Indication: HYPERLIPIDAEMIA
     Dosage: 0,0, 20 MG
     Route: 048
     Dates: start: 2019
  6. VITAMIN D3 [Concomitant]
     Active Substance: CHOLECALCIFEROL
     Indication: HYPOTHYROIDISM
     Dosage: WITH A MEAL, ONCE A DAY
     Route: 048
     Dates: start: 2019

REACTIONS (3)
  - Intentional product use issue [Unknown]
  - Off label use [Unknown]
  - Vaginal haemorrhage [Recovered/Resolved]

NARRATIVE: CASE EVENT DATE: 20201016
